FAERS Safety Report 20743410 (Version 2)
Quarter: 2025Q2

REPORT INFORMATION
  Report Type: Spontaneous
  Country: US (occurrence: US)
  Receive Date: 20220425
  Receipt Date: 20250528
  Transmission Date: 20250717
  Serious: No
  Sender: CIPLA
  Company Number: US-CIPLA LTD.-2022US00965

PATIENT

DRUGS (2)
  1. ALBUTEROL [Suspect]
     Active Substance: ALBUTEROL
     Indication: Product used for unknown indication
     Dosage: UNK, BID, FROM YEARS (STRENGTH:6.7 GMS)
  2. ALBUTEROL [Suspect]
     Active Substance: ALBUTEROL
     Dosage: UNK, BID (STRENGTH:6.7 GMS)
     Dates: start: 202201

REACTIONS (7)
  - Incorrect dose administered [Unknown]
  - Wrong technique in product usage process [Unknown]
  - Device ineffective [Unknown]
  - Device delivery system issue [Unknown]
  - Device malfunction [Unknown]
  - Device defective [Unknown]
  - Anticipatory anxiety [Unknown]

NARRATIVE: CASE EVENT DATE: 20220212
